FAERS Safety Report 10310491 (Version 1)
Quarter: 2014Q3

REPORT INFORMATION
  Report Type: Spontaneous
  Country: US (occurrence: None)
  Receive Date: 20140716
  Receipt Date: 20140716
  Transmission Date: 20150326
  Serious: Yes (Hospitalization)
  Sender: FDA-Public Use
  Company Number: None

PATIENT
  Age: 5 Year
  Sex: Female
  Weight: 16.9 kg

DRUGS (5)
  1. DEXAMETHASONE. [Suspect]
     Active Substance: DEXAMETHASONE
     Dates: end: 20140706
  2. ONCASPAR [Suspect]
     Active Substance: PEGASPARGASE
     Dates: end: 20140619
  3. DOXORUBICIN HYDROCHLORIDE. [Suspect]
     Active Substance: DOXORUBICIN HYDROCHLORIDE
     Dates: end: 20140630
  4. METHOTREXATE [Suspect]
     Active Substance: METHOTREXATE
     Dates: end: 20140616
  5. VINCRISTINE SULFATE. [Suspect]
     Active Substance: VINCRISTINE SULFATE
     Dates: end: 20140630

REACTIONS (2)
  - Leukoencephalopathy [None]
  - Hyperammonaemia [None]

NARRATIVE: CASE EVENT DATE: 20140701
